FAERS Safety Report 5482554-X (Version None)
Quarter: 2007Q4

REPORT INFORMATION
  Report Type: 
  Country: None (occurrence: None)
  Receive Date: 20071011
  Receipt Date: 20070813
  Transmission Date: 20080405
  Serious: Yes (Hospitalization, Other)
  Sender: FDA-Public Use
  Company Number: A0661906A

PATIENT
  Age: 61 Year
  Sex: Female
  Weight: 56.8 kg

DRUGS (5)
  1. TYKERB [Suspect]
     Indication: BREAST CANCER
     Dosage: 1250MG PER DAY
     Route: 048
     Dates: start: 20070628, end: 20070629
  2. XELODA [Suspect]
     Indication: BREAST CANCER
     Route: 048
     Dates: start: 20070628
  3. BENZONATATE [Concomitant]
  4. PROMETHAZINE [Concomitant]
  5. OXYCODONE HCL [Concomitant]

REACTIONS (1)
  - DIARRHOEA [None]
